FAERS Safety Report 6135939-2 (Version None)
Quarter: 2009Q1

REPORT INFORMATION
  Report Type: 
  Country: None (occurrence: None)
  Receive Date: 20090329
  Receipt Date: 20080425
  Transmission Date: 20090719
  Serious: No
  Sender: FDA-Public Use
  Company Number: US-BAUSCH-2008BL001859

PATIENT
  Age: 76 Year
  Sex: Female
  Weight: 61 kg

DRUGS (2)
  1. ALREX [Suspect]
     Indication: LACRIMATION INCREASED
     Route: 047
     Dates: start: 20080416, end: 20080422
  2. TUMS [Concomitant]
     Indication: DYSPEPSIA

REACTIONS (3)
  - CHEST PAIN [None]
  - DYSPNOEA [None]
  - VISION BLURRED [None]
